FAERS Safety Report 4924309-8 (Version None)
Quarter: 2006Q1

REPORT INFORMATION
  Report Type: 
  Country: None (occurrence: None)
  Receive Date: 20060227
  Receipt Date: 20060109
  Transmission Date: 20060701
  Serious: No
  Sender: FDA-Public Use
  Company Number: US-GLAXOSMITHKLINE-A0588358A

PATIENT
  Age: 49 Year
  Sex: Female

DRUGS (21)
  1. WELLBUTRIN XL [Suspect]
     Indication: DEPRESSION
     Dosage: 150MG SEE DOSAGE TEXT
     Route: 048
  2. PRILOSEC [Concomitant]
  3. METOCLOPRAMIDE [Concomitant]
  4. TOPAMAX [Concomitant]
  5. NAPROSYN [Concomitant]
  6. CLONAZEPAM [Concomitant]
  7. MIRTAZAPINE [Concomitant]
  8. LITHIUM CARBONATE [Concomitant]
  9. METFORMIN [Concomitant]
  10. GEMFIBROZIL [Concomitant]
  11. LESCOL XL [Concomitant]
  12. HYDROCHLOROTHIAZIDE [Concomitant]
  13. CALCIUM GLUCONATE [Concomitant]
  14. HYDROXYZINE [Concomitant]
  15. VITAMIN B COMPLEX CAP [Concomitant]
  16. MULTI-VITAMIN [Concomitant]
  17. POTASSIUM [Concomitant]
  18. ASPIRIN [Concomitant]
  19. FLOVENT [Concomitant]
  20. LORTAB [Concomitant]
  21. ALBUTEROL [Concomitant]

REACTIONS (8)
  - ACCIDENTAL OVERDOSE [None]
  - DIZZINESS [None]
  - FEELING DRUNK [None]
  - NAUSEA [None]
  - PALLOR [None]
  - PERSONALITY CHANGE [None]
  - PHARMACEUTICAL PRODUCT COMPLAINT [None]
  - VOMITING [None]
